FAERS Safety Report 9551678 (Version 1)
Quarter: 2013Q3

REPORT INFORMATION
  Report Type: Spontaneous
  Country: US (occurrence: US)
  Receive Date: 20130925
  Receipt Date: 20130925
  Transmission Date: 20140515
  Serious: No
  Sender: FDA-Public Use
  Company Number: US-JNJFOC-20130909075

PATIENT
  Sex: Female
  Weight: 90.27 kg

DRUGS (2)
  1. FENTANYL [Suspect]
     Indication: BACK INJURY
     Route: 062
  2. OXYCODONE [Concomitant]
     Indication: PAIN
     Dosage: UP TO 3 PER DAY
     Route: 048

REACTIONS (1)
  - Incorrect drug administration rate [Recovered/Resolved]
